FAERS Safety Report 5358748-0 (Version None)
Quarter: 2007Q2

REPORT INFORMATION
  Report Type: 
  Country: None (occurrence: None)
  Receive Date: 20070615
  Receipt Date: 20070605
  Transmission Date: 20071010
  Serious: Yes (Hospitalization)
  Sender: FDA-Public Use
  Company Number: FR-AMGEN-UK227813

PATIENT
  Sex: Female

DRUGS (8)
  1. ARANESP [Suspect]
     Indication: DRUG USE FOR UNKNOWN INDICATION
     Route: 058
     Dates: start: 20070101, end: 20070426
  2. HEC POMMADE [Suspect]
     Dates: start: 20070313
  3. PEGASYS [Concomitant]
     Dates: start: 20061201
  4. COPEGUS [Concomitant]
     Dates: start: 20061201
  5. AMOXICILLIN [Concomitant]
     Dates: start: 20070313, end: 20070320
  6. RHINOFLUIMUCIL [Concomitant]
     Dates: start: 20070313, end: 20070320
  7. MAXILASE [Concomitant]
     Dates: start: 20070313, end: 20070320
  8. ACETAMINOPHEN [Concomitant]

REACTIONS (3)
  - DRUG ERUPTION [None]
  - PRURITUS [None]
  - RASH MACULO-PAPULAR [None]
